FAERS Safety Report 8028463-3 (Version None)
Quarter: 2012Q1

REPORT INFORMATION
  Report Type: 
  Country: None (occurrence: None)
  Receive Date: 20120106
  Receipt Date: 20120103
  Transmission Date: 20120608
  Serious: Yes (Other)
  Sender: FDA-Public Use
  Company Number: DE-ABBOTT-11P-062-0726948-00

PATIENT
  Sex: Male
  Weight: 86 kg

DRUGS (5)
  1. PYRALVEX [Concomitant]
     Indication: APHTHOUS STOMATITIS
     Route: 061
  2. TRUVADA [Suspect]
     Indication: HIV INFECTION
     Route: 048
     Dates: start: 20110309
  3. CEFUROXIME [Concomitant]
     Indication: RESPIRATORY TRACT INFECTION
  4. KALETRA [Suspect]
     Indication: HIV INFECTION
     Dates: start: 20110309
  5. NOSCAPIN [Concomitant]
     Indication: COUGH
     Route: 048

REACTIONS (2)
  - BLOOD CREATININE INCREASED [None]
  - RENAL FAILURE [None]
